FAERS Safety Report 24059032 (Version 2)
Quarter: 2024Q3

REPORT INFORMATION
  Report Type: Report from Study
  Country: KR (occurrence: KR)
  Receive Date: 20240708
  Receipt Date: 20240902
  Transmission Date: 20241016
  Serious: Yes (Other)
  Sender: NOVARTIS
  Company Number: KR-002147023-NVSC2022KR192592

PATIENT
  Age: 47 Year
  Sex: Female

DRUGS (22)
  1. KISQALI [Suspect]
     Active Substance: RIBOCICLIB
     Indication: Hormone receptor positive HER2 negative breast cancer
     Dosage: 200 MG, QD
     Route: 048
     Dates: start: 20220629, end: 20220713
  2. KISQALI [Suspect]
     Active Substance: RIBOCICLIB
     Dosage: 200 MG, QD
     Route: 048
     Dates: start: 20220727, end: 20220817
  3. KISQALI [Suspect]
     Active Substance: RIBOCICLIB
     Dosage: 200 MG, QD
     Route: 048
     Dates: start: 20220831, end: 20220907
  4. GOSERELIN [Concomitant]
     Active Substance: GOSERELIN
     Indication: Hormone therapy
     Dosage: 3.6 MG, QD
     Route: 058
     Dates: start: 20220629, end: 20220629
  5. GOSERELIN [Concomitant]
     Active Substance: GOSERELIN
     Dosage: 3.6 MG, QD
     Route: 058
     Dates: start: 20220727, end: 20220727
  6. GOSERELIN [Concomitant]
     Active Substance: GOSERELIN
     Dosage: 3.6 MG, QD
     Route: 058
     Dates: start: 20220831, end: 20220831
  7. GOSERELIN [Concomitant]
     Active Substance: GOSERELIN
     Dosage: 3.6 MG, QD
     Route: 058
     Dates: start: 20220928, end: 20220928
  8. BRETRA [Concomitant]
     Indication: Hormone therapy
     Dosage: 2.5 MG, QD
     Route: 048
     Dates: start: 20220629
  9. XGEVA [Concomitant]
     Active Substance: DENOSUMAB
     Indication: Prophylaxis
     Dosage: 120 MG, QD
     Route: 058
     Dates: start: 20220727, end: 20220727
  10. XGEVA [Concomitant]
     Active Substance: DENOSUMAB
     Dosage: 120 MG, QD
     Route: 058
     Dates: start: 20220831, end: 20220831
  11. XGEVA [Concomitant]
     Active Substance: DENOSUMAB
     Dosage: 120 MG, QD
     Route: 058
     Dates: start: 20220928, end: 20220928
  12. FOLIC ACID [Concomitant]
     Active Substance: FOLIC ACID
     Indication: Prophylaxis
     Dosage: 1 MG, QD
     Route: 048
     Dates: start: 20210907
  13. FEROBA-YOU [Concomitant]
     Indication: Prophylaxis
     Dosage: 2 DOSAGE FORM, QD (SR)
     Route: 048
     Dates: start: 20210629
  14. ESCHERICHIA COLI [Concomitant]
     Active Substance: ESCHERICHIA COLI
     Indication: Hypertensive nephropathy
     Dosage: 60 MG, QD
     Route: 048
     Dates: start: 20220718
  15. PLUNAZOLE [Concomitant]
     Indication: Hypertensive nephropathy
     Dosage: 50 MG, QD
     Route: 048
     Dates: start: 20220718, end: 20220722
  16. OMACOR [Concomitant]
     Active Substance: OMEGA-3-ACID ETHYL ESTERS
     Indication: Hyperlipidaemia
     Dosage: 4 DOSAGE FORM, QD (SC)
     Route: 048
     Dates: start: 20210713
  17. LOWPOTA [Concomitant]
     Indication: Hypertensive nephropathy
     Dosage: 5 G, QD
     Route: 048
     Dates: start: 20210622
  18. FEBUXOSTAT [Concomitant]
     Active Substance: FEBUXOSTAT
     Indication: Hypertensive nephropathy
     Dosage: 40 MG, QD
     Route: 048
     Dates: start: 20220623
  19. ADALAT [Concomitant]
     Active Substance: NIFEDIPINE
     Indication: Hypertension
     Dosage: 120 MG, QD (30 TABLETS)
     Route: 048
     Dates: start: 20220727
  20. DARBEPOETIN ALFA [Concomitant]
     Active Substance: DARBEPOETIN ALFA
     Indication: Hypertensive nephropathy
     Dosage: 120 UG, QD
     Route: 058
     Dates: start: 20220824, end: 20220824
  21. TYLENOL [Concomitant]
     Active Substance: ACETAMINOPHEN
     Indication: Prophylaxis
     Dosage: 1950 MG, QD
     Route: 048
     Dates: start: 20220928, end: 20221008
  22. LASIX [Concomitant]
     Active Substance: FUROSEMIDE
     Indication: Hypertensive nephropathy
     Dosage: 40 MG, QD
     Route: 048
     Dates: start: 20221019

REACTIONS (3)
  - Acute kidney injury [Recovered/Resolved]
  - Acute kidney injury [Recovered/Resolved]
  - Dermatitis [Recovered/Resolved]

NARRATIVE: CASE EVENT DATE: 20220708
